FAERS Safety Report 4810089-3 (Version None)
Quarter: 2005Q4

REPORT INFORMATION
  Report Type: 
  Country: None (occurrence: None)
  Receive Date: 20051026
  Receipt Date: 20051018
  Transmission Date: 20060501
  Serious: Yes (Hospitalization)
  Sender: FDA-Public Use
  Company Number: 2005AP05455

PATIENT
  Age: 33669 Day
  Sex: Female

DRUGS (6)
  1. ATACAND HCT [Suspect]
     Dosage: 16/12.5
     Route: 048
  2. WARFARIN SODIUM [Concomitant]
     Route: 048
  3. SIMVASTATIN [Concomitant]
     Route: 048
  4. ACETAMINOPHEN [Concomitant]
  5. RANITIDINE [Concomitant]
     Route: 048
  6. AMLODIPINE [Concomitant]
     Route: 048

REACTIONS (2)
  - FALL [None]
  - HYPONATRAEMIA [None]
